FAERS Safety Report 25894186 (Version 1)
Quarter: 2025Q4

REPORT INFORMATION
  Report Type: Spontaneous
  Country: US (occurrence: US)
  Receive Date: 20251008
  Receipt Date: 20251008
  Transmission Date: 20260117
  Serious: No
  Sender: Thea Pharma
  Company Number: US-THEA-2025002007

PATIENT
  Sex: Female

DRUGS (4)
  1. IYUZEH [Suspect]
     Active Substance: LATANOPROST
     Indication: Glaucoma
     Dosage: EACH EYE AT BEDTIME
     Route: 047
     Dates: start: 20250721, end: 20250721
  2. ASPIRIN [Concomitant]
     Active Substance: ASPIRIN
     Indication: Product used for unknown indication
  3. DILTIAZEM [Concomitant]
     Active Substance: DILTIAZEM
     Indication: Product used for unknown indication
  4. LOSARTAN [Concomitant]
     Active Substance: LOSARTAN
     Indication: Product used for unknown indication

REACTIONS (2)
  - Photophobia [Recovered/Resolved]
  - Eye pain [Recovered/Resolved]

NARRATIVE: CASE EVENT DATE: 20250722
